FAERS Safety Report 19042971 (Version 1)
Quarter: 2021Q1

REPORT INFORMATION
  Report Type: Spontaneous
  Country: US (occurrence: US)
  Receive Date: 20210322
  Receipt Date: 20210322
  Transmission Date: 20210420
  Serious: No
  Sender: FDA-Public Use
  Company Number: None

PATIENT
  Age: 60 Year
  Sex: Male
  Weight: 72 kg

DRUGS (1)
  1. FAMCICLOVIR 500MG [Suspect]
     Active Substance: FAMCICLOVIR
     Indication: ORAL HERPES
     Dosage: ?          QUANTITY:3 DF DOSAGE FORM;OTHER ROUTE:3 TABLETS PER MOUTH ONE TIME?
     Dates: start: 20200314, end: 20200314

REACTIONS (2)
  - Middle insomnia [None]
  - Palpitations [None]

NARRATIVE: CASE EVENT DATE: 20210314
